FAERS Safety Report 6680646-0 (Version None)
Quarter: 2010Q2

REPORT INFORMATION
  Report Type: 
  Country: None (occurrence: None)
  Receive Date: 20100414
  Receipt Date: 20100402
  Transmission Date: 20101027
  Serious: Yes (Hospitalization)
  Sender: FDA-Public Use
  Company Number: FR-PFIZER INC-2010044703

PATIENT
  Sex: Male
  Weight: 2.26 kg

DRUGS (2)
  1. ATARAX [Suspect]
     Dosage: 100 MG DAILY
     Route: 064
     Dates: start: 20091101, end: 20091223
  2. LARGACTIL [Suspect]
     Dosage: 200 MG DAILY
     Route: 064
     Dates: start: 20091101, end: 20091223

REACTIONS (8)
  - DRUG EXPOSURE DURING PREGNANCY [None]
  - INFECTION [None]
  - MATERNAL DRUGS AFFECTING FOETUS [None]
  - NEONATAL RESPIRATORY DISTRESS SYNDROME [None]
  - RESPIRATORY DISTRESS [None]
  - TREMOR [None]
  - TREMOR NEONATAL [None]
  - VERTICAL INFECTION TRANSMISSION [None]
